FAERS Safety Report 4521810-6 (Version None)
Quarter: 2004Q4

REPORT INFORMATION
  Report Type: 
  Country: None (occurrence: None)
  Receive Date: 20041209
  Receipt Date: 20041203
  Transmission Date: 20050328
  Serious: Yes (Hospitalization)
  Sender: FDA-Public Use
  Company Number: 200419260US

PATIENT
  Sex: Female
  Weight: 71.4 kg

DRUGS (13)
  1. LOVENOX [Suspect]
     Indication: MYOCARDIAL ISCHAEMIA
     Route: 058
     Dates: start: 20041115, end: 20041117
  2. ASPIRIN [Suspect]
     Dosage: DOSE: UNK
  3. PLAVIX [Suspect]
     Route: 048
  4. LISINOPRIL [Concomitant]
     Dosage: DOSE: UNK
  5. TOPROL-XL [Concomitant]
     Dosage: DOSE: UNK
  6. NIASPAN [Concomitant]
     Dosage: DOSE: UNK
  7. RAMIPRIL [Concomitant]
     Dosage: DOSE: UNK
  8. ASPIRIN [Concomitant]
     Dosage: DOSE: UNK
  9. INSULIN (NOS) [Concomitant]
     Dosage: DOSE: UNK
  10. FOSAMAX [Concomitant]
     Dosage: DOSE: UNK
  11. ALBUTEROL [Concomitant]
     Dosage: DOSE: UNK
  12. COMBIVENT [Concomitant]
     Dosage: DOSE: UNK
  13. LASIX [Concomitant]
     Dosage: DOSE: UNK

REACTIONS (7)
  - ATRIAL NATRIURETIC PEPTIDE INCREASED [None]
  - CARDIAC FAILURE [None]
  - HAEMATOCRIT DECREASED [None]
  - HAEMOGLOBIN DECREASED [None]
  - HAEMOPTYSIS [None]
  - HAEMORRHAGE [None]
  - PULMONARY FIBROSIS [None]
